FAERS Safety Report 25968901 (Version 1)
Quarter: 2025Q4

REPORT INFORMATION
  Report Type: Spontaneous
  Country: US (occurrence: US)
  Receive Date: 20251028
  Receipt Date: 20251028
  Transmission Date: 20260117
  Serious: No
  Sender: ROCHE
  Company Number: US-ROCHE-10000412090

PATIENT
  Sex: Female

DRUGS (2)
  1. ITOVEBI [Suspect]
     Active Substance: INAVOLISIB
     Indication: Breast cancer
     Route: 065
  2. ITOVEBI [Suspect]
     Active Substance: INAVOLISIB
     Route: 065

REACTIONS (1)
  - Neutropenia [Unknown]
